FAERS Safety Report 7194388-9 (Version None)
Quarter: 2010Q4

REPORT INFORMATION
  Report Type: 
  Country: None (occurrence: None)
  Receive Date: 20101124
  Receipt Date: 20100805
  Transmission Date: 20110411
  Serious: No
  Sender: FDA-Public Use
  Company Number: 002309

PATIENT
  Sex: Female
  Weight: 65.9 kg

DRUGS (7)
  1. LACOSAMIDE [Suspect]
     Indication: NEURALGIA
     Dosage: (50 MG BID ORAL) ; (100 MG ORAL)
     Route: 048
     Dates: start: 20091013, end: 20091020
  2. LACOSAMIDE [Suspect]
     Indication: NEURALGIA
     Dosage: (50 MG BID ORAL) ; (100 MG ORAL)
     Route: 048
     Dates: start: 20091020
  3. SOMA [Concomitant]
  4. MELOXICAM [Concomitant]
  5. MOBIC [Concomitant]
  6. GABAPENTIN [Concomitant]
  7. OXYCODONE HCL [Concomitant]

REACTIONS (2)
  - MEDICATION ERROR [None]
  - OFF LABEL USE [None]
